FAERS Safety Report 19472424 (Version 1)
Quarter: 2021Q2

REPORT INFORMATION
  Report Type: Spontaneous
  Country: JP (occurrence: JP)
  Receive Date: 20210629
  Receipt Date: 20210629
  Transmission Date: 20210717
  Serious: Yes (Hospitalization)
  Sender: FDA-Public Use
  Company Number: JP-ASTELLAS-2021JP012328

PATIENT
  Age: 54 Year
  Sex: Male
  Weight: 54 kg

DRUGS (15)
  1. PREDNISOLONE. [Suspect]
     Active Substance: PREDNISOLONE
     Dosage: 50 MG/DAY, UNKNOWN FREQ.
     Route: 065
     Dates: start: 2018
  2. PREDNISOLONE. [Suspect]
     Active Substance: PREDNISOLONE
     Dosage: 15 MG/DAY, UNKNOWN FREQ.
     Route: 065
     Dates: start: 2019
  3. PREDNISOLONE. [Suspect]
     Active Substance: PREDNISOLONE
     Dosage: 20 MG/DAY, UNKNOWN FREQ.
     Route: 065
  4. METHOTREXATE. [Suspect]
     Active Substance: METHOTREXATE
     Indication: TAKAYASU^S ARTERITIS
     Route: 065
     Dates: end: 201811
  5. PREDNISOLONE. [Suspect]
     Active Substance: PREDNISOLONE
     Dosage: 30 MG/DAY, UNKNOWN FREQ.
     Route: 065
     Dates: start: 2018
  6. PREDNISOLONE. [Suspect]
     Active Substance: PREDNISOLONE
     Dosage: 40 MG/DAY, UNKNOWN FREQ.
     Route: 065
     Dates: start: 2019
  7. PREDNISOLONE. [Suspect]
     Active Substance: PREDNISOLONE
     Dosage: 30 MG/DAY, UNKNOWN FREQ.
     Route: 065
  8. PREDNISOLONE. [Suspect]
     Active Substance: PREDNISOLONE
     Dosage: 30 MG/DAY, UNKNOWN FREQ.
     Route: 065
     Dates: start: 2019
  9. CICLOSPORIN [Suspect]
     Active Substance: CYCLOSPORINE
     Indication: INTERSTITIAL LUNG DISEASE
     Dosage: UNK UNK, UNKNOWN FREQ.
     Route: 065
     Dates: start: 2019, end: 2019
  10. PREDNISOLONE. [Suspect]
     Active Substance: PREDNISOLONE
     Indication: TAKAYASU^S ARTERITIS
     Dosage: 60 MG/DAY, UNKNOWN FREQ.
     Route: 065
     Dates: start: 201808
  11. PREDNISOLONE. [Suspect]
     Active Substance: PREDNISOLONE
     Dosage: 40 MG/DAY, UNKNOWN FREQ.
     Route: 065
     Dates: start: 2018
  12. PREDNISOLONE. [Suspect]
     Active Substance: PREDNISOLONE
     Dosage: 60 MG/DAY, UNKNOWN FREQ.
     Route: 065
     Dates: start: 2019
  13. PREDNISOLONE. [Suspect]
     Active Substance: PREDNISOLONE
     Dosage: 20 MG/DAY, UNKNOWN FREQ.
     Route: 065
     Dates: start: 2019
  14. TOCILIZUMAB. [Suspect]
     Active Substance: TOCILIZUMAB
     Indication: TAKAYASU^S ARTERITIS
     Dosage: UNK UNK, UNKNOWN FREQ.
     Route: 065
     Dates: start: 201812
  15. TACROLIMUS. [Suspect]
     Active Substance: TACROLIMUS
     Indication: INTERSTITIAL LUNG DISEASE
     Dosage: 4 MG/DAY, UNKNOWN FREQ.
     Route: 065
     Dates: start: 2019, end: 2019

REACTIONS (2)
  - Alveolar proteinosis [Recovered/Resolved]
  - Off label use [Unknown]

NARRATIVE: CASE EVENT DATE: 2019
